FAERS Safety Report 6069641-2 (Version None)
Quarter: 2009Q1

REPORT INFORMATION
  Report Type: 
  Country: None (occurrence: None)
  Receive Date: 20090209
  Receipt Date: 20090129
  Transmission Date: 20090719
  Serious: Yes (Hospitalization, Other)
  Sender: FDA-Public Use
  Company Number: PT-JNJFOC-20080901765

PATIENT
  Sex: Female
  Weight: 66 kg

DRUGS (12)
  1. TMC125 [Suspect]
     Route: 048
     Dates: start: 20080829
  2. TMC125 [Suspect]
     Indication: HIV INFECTION
     Route: 048
     Dates: start: 20080829
  3. PREZISTA [Suspect]
     Indication: HIV INFECTION
     Route: 048
     Dates: start: 20080829
  4. TRUVADA [Suspect]
     Indication: HIV INFECTION
     Route: 048
     Dates: start: 20080829
  5. ZIAGEN [Suspect]
     Indication: HIV INFECTION
     Route: 048
     Dates: start: 20080829
  6. NORVIR [Suspect]
     Indication: HIV INFECTION
     Route: 048
     Dates: start: 20080829
  7. LOPINAVIR AND RITONAVIR [Suspect]
     Indication: HIV INFECTION
     Route: 048
     Dates: end: 20080829
  8. STAVUDINE [Suspect]
     Indication: HIV INFECTION
     Route: 048
     Dates: end: 20080606
  9. LAMIVUDINE [Suspect]
     Indication: HIV INFECTION
     Dates: end: 20080606
  10. COMBIVIR [Suspect]
     Indication: HIV INFECTION
     Route: 048
     Dates: start: 20080606, end: 20080829
  11. IRON SULFATETHIAMIN COMPOUND TAB [Concomitant]
     Route: 048
     Dates: start: 20080514, end: 20081215
  12. FOLIC ACID [Concomitant]
     Route: 048
     Dates: start: 20080514, end: 20081215

REACTIONS (3)
  - DRUG EXPOSURE DURING PREGNANCY [None]
  - POLYHYDRAMNIOS [None]
  - UTERINE CONTRACTIONS DURING PREGNANCY [None]
